FAERS Safety Report 19372419 (Version 2)
Quarter: 2021Q2

REPORT INFORMATION
  Report Type: Spontaneous
  Country: CZ (occurrence: CZ)
  Receive Date: 20210604
  Receipt Date: 20210618
  Transmission Date: 20210717
  Serious: Yes (Other)
  Sender: FDA-Public Use
  Company Number: CZ-ASTRAZENECA-2021A474545

PATIENT
  Age: 58 Year
  Sex: Male

DRUGS (2)
  1. ATROVENT [Concomitant]
     Active Substance: IPRATROPIUM BROMIDE
  2. IMFINZI [Suspect]
     Active Substance: DURVALUMAB
     Indication: LUNG NEOPLASM MALIGNANT
     Route: 041
     Dates: start: 20200902, end: 20210511

REACTIONS (2)
  - Ototoxicity [Unknown]
  - Palpitations [Unknown]
